FAERS Safety Report 25960508 (Version 3)
Quarter: 2025Q4

REPORT INFORMATION
  Report Type: Spontaneous
  Country: US (occurrence: US)
  Receive Date: 20251027
  Receipt Date: 20251218
  Transmission Date: 20260118
  Serious: No
  Sender: CIPLA
  Company Number: US-CIPLA LTD.-2025US13254

PATIENT

DRUGS (2)
  1. ALBUTEROL [Suspect]
     Active Substance: ALBUTEROL
     Indication: Product used for unknown indication
     Dosage: UNK (2 INHALERS)
     Route: 065
     Dates: start: 2025
  2. ALBUTEROL [Suspect]
     Active Substance: ALBUTEROL
     Dosage: UNK (TOOK IT TWO TIMES ALREADY)
     Route: 065
     Dates: start: 202510

REACTIONS (4)
  - Drug dose omission by device [Unknown]
  - Device delivery system issue [Unknown]
  - Product packaging quantity issue [Unknown]
  - Device malfunction [Unknown]

NARRATIVE: CASE EVENT DATE: 20250101
